FAERS Safety Report 6343748-4 (Version None)
Quarter: 2009Q3

REPORT INFORMATION
  Report Type: 
  Country: None (occurrence: None)
  Receive Date: 20090908
  Receipt Date: 20090903
  Transmission Date: 20100115
  Serious: Yes (Other)
  Sender: FDA-Public Use
  Company Number: A0806007A

PATIENT
  Age: 83 Year
  Sex: Male
  Weight: 69.4 kg

DRUGS (4)
  1. MELPHALAN HYDROCHLORIDE [Suspect]
     Indication: MULTIPLE MYELOMA
     Route: 065
  2. VELCADE [Suspect]
     Indication: MULTIPLE MYELOMA
     Dosage: 1.5MG UNKNOWN
     Route: 042
     Dates: start: 20090316, end: 20090430
  3. DECADRON [Suspect]
     Indication: MULTIPLE MYELOMA
     Route: 065
  4. CHEMOTHERAPY [Concomitant]

REACTIONS (8)
  - ADVERSE EVENT [None]
  - DIPLOPIA [None]
  - DIZZINESS [None]
  - HYPOAESTHESIA [None]
  - MEMORY IMPAIRMENT [None]
  - NEUROPATHY PERIPHERAL [None]
  - OPTIC NERVE DISORDER [None]
  - OPTIC NEUROPATHY [None]
